FAERS Safety Report 19959288 (Version 1)
Quarter: 2021Q4

REPORT INFORMATION
  Report Type: Spontaneous
  Country: US (occurrence: US)
  Receive Date: 20211013
  Receipt Date: 20211013
  Transmission Date: 20220303
  Serious: Yes (Death)
  Sender: FDA-Public Use
  Company Number: None

PATIENT
  Age: 99 Year
  Sex: Male

DRUGS (1)
  1. ABIRATERONE [Suspect]
     Active Substance: ABIRATERONE
     Dosage: TAKE 3 TABS (250MG)  DAILY ORAL
     Route: 048
     Dates: start: 202008

REACTIONS (1)
  - Death [None]

NARRATIVE: CASE EVENT DATE: 20211011
